FAERS Safety Report 21995817 (Version 1)
Quarter: 2023Q1

REPORT INFORMATION
  Report Type: Report from Study
  Country: BR (occurrence: BR)
  Receive Date: 20230215
  Receipt Date: 20230215
  Transmission Date: 20230417
  Serious: Yes (Other)
  Sender: FDA-Public Use
  Company Number: BR-JNJFOC-20220339568

PATIENT
  Age: 70 Year
  Sex: Female
  Weight: 100 kg

DRUGS (3)
  1. SIMPONI [Suspect]
     Active Substance: GOLIMUMAB
     Indication: Rheumatoid arthritis
     Route: 058
     Dates: start: 20220117, end: 202204
  2. SIMPONI [Suspect]
     Active Substance: GOLIMUMAB
     Route: 058
  3. AZITHROMYCIN [Concomitant]
     Active Substance: AZITHROMYCIN

REACTIONS (6)
  - Intervertebral disc protrusion [Recovering/Resolving]
  - Rheumatoid arthritis [Unknown]
  - COVID-19 [Recovering/Resolving]
  - Sinusitis [Unknown]
  - Sciatica [Unknown]
  - Off label use [Unknown]

NARRATIVE: CASE EVENT DATE: 20220117
